FAERS Safety Report 23665936 (Version 1)
Quarter: 2024Q1

REPORT INFORMATION
  Report Type: Spontaneous
  Country: CN (occurrence: CN)
  Receive Date: 20240323
  Receipt Date: 20240323
  Transmission Date: 20240410
  Serious: Yes (Other)
  Sender: FDA-Public Use
  Company Number: None

PATIENT
  Age: 51 Year
  Sex: Female
  Weight: 58 kg

DRUGS (4)
  1. CYCLOPHOSPHAMIDE [Suspect]
     Active Substance: CYCLOPHOSPHAMIDE
     Indication: Breast cancer female
     Dosage: 0.9 G, ONCE A DAY, D1, DILUTED WITH 100 ML OF 0.9 % SODIUM CHLORIDE
     Route: 041
     Dates: start: 20240205, end: 20240205
  2. SODIUM CHLORIDE [Suspect]
     Active Substance: SODIUM CHLORIDE
     Indication: Medication dilution
     Dosage: 0.9% 100 ML, ONCE A DAY, D1, USED TO DILUTE 0.9 G OF CYCLOPHOSPHAMIDE
     Route: 041
     Dates: start: 20240205, end: 20240205
  3. SODIUM CHLORIDE [Suspect]
     Active Substance: SODIUM CHLORIDE
     Dosage: 0.9% 250 ML, ONCE A DAY, D1, USED TO DILUTE 120 MG OF DOCETAXEL
     Route: 041
     Dates: start: 20240205, end: 20240205
  4. DOCETAXEL [Suspect]
     Active Substance: DOCETAXEL\DOCETAXEL ANHYDROUS
     Indication: Breast cancer female
     Dosage: 120 MG, ONCE A DAY, D1, DILUTED WITH 250 ML OF 0.9 % SODIUM CHLORIDE, LOT NUMBER: PURCHASED FROM OUT
     Route: 041
     Dates: start: 20240205, end: 20240205

REACTIONS (2)
  - Liver injury [Recovering/Resolving]
  - Hepatic function abnormal [Recovering/Resolving]

NARRATIVE: CASE EVENT DATE: 20240226
